FAERS Safety Report 26113317 (Version 2)
Quarter: 2025Q4

REPORT INFORMATION
  Report Type: Spontaneous
  Country: US (occurrence: US)
  Receive Date: 20251202
  Receipt Date: 20251218
  Transmission Date: 20260117
  Serious: No
  Sender: VERTEX
  Company Number: US-VERTEX PHARMACEUTICALS-2025-020013

PATIENT
  Age: 70 Year

DRUGS (1)
  1. JOURNAVX [Suspect]
     Active Substance: SUZETRIGINE
     Indication: Product used for unknown indication
     Dosage: 1 TABLET, BID
     Route: 061
     Dates: start: 20251120

REACTIONS (7)
  - Skin warm [Unknown]
  - Swelling of eyelid [Unknown]
  - Swelling face [Unknown]
  - Throat irritation [Unknown]
  - Eyelid ptosis [Unknown]
  - Erythema [Unknown]
  - Rash macular [Unknown]

NARRATIVE: CASE EVENT DATE: 20251121
